FAERS Safety Report 9149283 (Version 1)
Quarter: 2013Q1

REPORT INFORMATION
  Report Type: Spontaneous
  Country: US (occurrence: None)
  Receive Date: 20130129
  Receipt Date: 20130129
  Transmission Date: 20140127
  Serious: Yes (Other)
  Sender: FDA-Public Use
  Company Number: 2013AP000983

PATIENT
  Age: 10 Year
  Sex: Male

DRUGS (7)
  1. LEFLUNOMIDE [Suspect]
     Indication: MOLLUSCUM CONTAGIOSUM
     Dosage: 60 MG; QD?30 MG; QD
  2. TACROLIMUS [Suspect]
  3. ALBUTEROL [Concomitant]
  4. MONTELUKAST [Concomitant]
  5. CORTICOSTEROIDS [Concomitant]
  6. TERAZOSIN [Concomitant]
  7. MYCOPHENOLATE [Concomitant]

REACTIONS (4)
  - Drug level fluctuating [None]
  - Hydronephrosis [None]
  - Complications of transplanted kidney [None]
  - Off label use [None]
